FAERS Safety Report 8230838-4 (Version None)
Quarter: 2012Q1

REPORT INFORMATION
  Report Type: 
  Country: None (occurrence: None)
  Receive Date: 20120323
  Receipt Date: 20120321
  Transmission Date: 20120608
  Serious: Yes (Hospitalization, Other)
  Sender: FDA-Public Use
  Company Number: US-BAYER-2012-027985

PATIENT
  Age: 69 Year
  Sex: Female

DRUGS (4)
  1. BACLOFEN [Concomitant]
     Indication: MUSCLE SPASTICITY
  2. BETASERON [Suspect]
     Dosage: UNK
     Dates: start: 19940720, end: 20040821
  3. BETASERON [Suspect]
     Indication: RELAPSING-REMITTING MULTIPLE SCLEROSIS
     Dosage: 8 MIU, QOD
     Route: 058
     Dates: start: 20110819, end: 20120301
  4. BETASERON [Suspect]
     Dosage: UNK
     Dates: start: 20041206, end: 20100615

REACTIONS (4)
  - STAPHYLOCOCCAL INFECTION [None]
  - IMMUNODEFICIENCY [None]
  - GAIT DISTURBANCE [None]
  - FURUNCLE [None]
